FAERS Safety Report 15921281 (Version 1)
Quarter: 2019Q1

REPORT INFORMATION
  Report Type: Other
  Country: FR (occurrence: FR)
  Receive Date: 20190205
  Receipt Date: 20190205
  Transmission Date: 20190417
  Serious: Yes (Hospitalization)
  Sender: FDA-Public Use
  Company Number: FR-GE HEALTHCARE LIFE SCIENCES-2019CSU000630

PATIENT

DRUGS (11)
  1. OMNIPAQUE [Suspect]
     Active Substance: IOHEXOL
     Indication: PRODUCT USED FOR UNKNOWN INDICATION
  2. PREVISCAN [Concomitant]
  3. INEXIUM [Concomitant]
     Active Substance: ESOMEPRAZOLE
  4. BISOPROLOL HEMIFUMARATE [Concomitant]
     Active Substance: BISOPROLOL FUMARATE
  5. KARDEGIC [Concomitant]
     Active Substance: ASPIRIN DL-LYSINE
  6. FUROSEMIDE. [Concomitant]
     Active Substance: FUROSEMIDE
  7. TAHOR [Concomitant]
     Active Substance: ATORVASTATIN CALCIUM
  8. LERCAN [Concomitant]
     Active Substance: LERCANIDIPINE
  9. MAG 2 [Concomitant]
     Active Substance: MAGNESIUM CHLORIDE
  10. URAPIDIL [Concomitant]
     Active Substance: URAPIDIL
  11. OMNIPAQUE [Suspect]
     Active Substance: IOHEXOL
     Indication: ANGIOCARDIOGRAM
     Dosage: 67 ML, SINGLE
     Route: 042
     Dates: start: 20151027, end: 20151027

REACTIONS (2)
  - Hyperkalaemia [Recovered/Resolved]
  - Chronic kidney disease [Recovered/Resolved]

NARRATIVE: CASE EVENT DATE: 20151112
